FAERS Safety Report 7092921-9 (Version None)
Quarter: 2010Q4

REPORT INFORMATION
  Report Type: 
  Country: None (occurrence: None)
  Receive Date: 20101110
  Receipt Date: 20101107
  Transmission Date: 20110411
  Serious: No
  Sender: FDA-Public Use
  Company Number: US-PFIZER INC-2010141807

PATIENT
  Sex: Female
  Weight: 43 kg

DRUGS (5)
  1. ANTIVERT [Suspect]
     Indication: MENIERE'S DISEASE
     Dosage: 50 MG, 3X/DAY
     Route: 048
     Dates: start: 20101105, end: 20101106
  2. COZAAR [Concomitant]
     Dosage: UNK
  3. RANITIDINE [Concomitant]
     Dosage: UNK
  4. DIAZEPAM [Concomitant]
     Dosage: UNK
  5. LOVASTATIN [Concomitant]
     Dosage: UNK

REACTIONS (1)
  - RASH [None]
